FAERS Safety Report 5883505-6 (Version None)
Quarter: 2008Q3

REPORT INFORMATION
  Report Type: 
  Country: None (occurrence: None)
  Receive Date: 20080915
  Receipt Date: 20080915
  Transmission Date: 20090109
  Serious: Yes (Hospitalization)
  Sender: FDA-Public Use
  Company Number: PHHO2002US08198

PATIENT
  Sex: Male
  Weight: 111 kg

DRUGS (3)
  1. RAD 666 RAD+ [Suspect]
     Indication: HEART TRANSPLANT
     Dosage: UNK
     Route: 048
     Dates: start: 19990722
  2. SDZ RAD [Suspect]
     Indication: HEART TRANSPLANT
     Dosage: .75 MG, QD
     Route: 048
  3. NEORAL [Suspect]
     Indication: HEART TRANSPLANT
     Dosage: 100 MG, BID
     Route: 048
     Dates: start: 19990722

REACTIONS (5)
  - BLOOD GLUCOSE INCREASED [None]
  - DIABETES MELLITUS [None]
  - POLLAKIURIA [None]
  - THIRST [None]
  - WEIGHT DECREASED [None]
